FAERS Safety Report 9644702 (Version 1)
Quarter: 2013Q4

REPORT INFORMATION
  Report Type: Report from Study
  Country: US (occurrence: US)
  Receive Date: 20131025
  Receipt Date: 20131025
  Transmission Date: 20140711
  Serious: Yes (Other)
  Sender: FDA-Public Use
  Company Number: US-JNJFOC-20131011212

PATIENT
  Sex: Male
  Weight: 46.72 kg

DRUGS (3)
  1. REMICADE [Suspect]
     Indication: CROHN^S DISEASE
     Route: 042
     Dates: start: 20130601, end: 201308
  2. REMICADE [Suspect]
     Indication: CROHN^S DISEASE
     Route: 042
     Dates: start: 201308, end: 201309
  3. STEROIDS NOS [Concomitant]
     Route: 065
     Dates: start: 20130601, end: 201309

REACTIONS (7)
  - Hypokinesia [Unknown]
  - Colitis [Not Recovered/Not Resolved]
  - Gastritis [Not Recovered/Not Resolved]
  - Lethargy [Unknown]
  - Musculoskeletal pain [Unknown]
  - Malaise [Unknown]
  - Therapeutic response decreased [Unknown]
